FAERS Safety Report 5149745-9 (Version None)
Quarter: 2006Q4

REPORT INFORMATION
  Report Type: 
  Country: None (occurrence: None)
  Receive Date: 20061113
  Receipt Date: 20061004
  Transmission Date: 20070319
  Serious: Yes (Hospitalization)
  Sender: FDA-Public Use
  Company Number: HQWYE730106OCT06

PATIENT
  Sex: Female

DRUGS (3)
  1. ENBREL [Suspect]
     Indication: RHEUMATOID ARTHRITIS
     Route: 058
     Dates: start: 20050526, end: 20060920
  2. CORTICOSTEROID NOS [Concomitant]
     Route: 048
  3. RHEUMATREX [Concomitant]
     Route: 048
     Dates: end: 20060920

REACTIONS (4)
  - ANAEMIA [None]
  - ANOREXIA [None]
  - DIARRHOEA [None]
  - OVARIAN NEOPLASM [None]
